FAERS Safety Report 6526658-9 (Version None)
Quarter: 2009Q4

REPORT INFORMATION
  Report Type: 
  Country: None (occurrence: None)
  Receive Date: 20091214
  Receipt Date: 20081120
  Transmission Date: 20100525
  Serious: Yes (Life-Threatening, Hospitalization)
  Sender: FDA-Public Use
  Company Number: 598861

PATIENT
  Age: 48 Year
  Sex: Female
  Weight: 108.9 kg

DRUGS (3)
  1. PEGASYS [Suspect]
     Indication: HEPATITIS C
     Dosage: 180 UG 1 PER WEEK SUBCUTANEOUS
     Route: 058
     Dates: start: 20080201, end: 20081101
  2. COPEGUS [Suspect]
     Indication: HEPATITIS C
     Dosage: 600 MG 2 PER DAY ORAL
     Route: 048
     Dates: start: 20080201, end: 20081101
  3. PROCRIT [Concomitant]

REACTIONS (6)
  - DEPRESSION [None]
  - MANIA [None]
  - PLATELET COUNT DECREASED [None]
  - RED BLOOD CELL COUNT DECREASED [None]
  - SUICIDE ATTEMPT [None]
  - WHITE BLOOD CELL COUNT DECREASED [None]
